FAERS Safety Report 6438854-X (Version None)
Quarter: 2009Q4

REPORT INFORMATION
  Report Type: 
  Country: None (occurrence: None)
  Receive Date: 20091111
  Receipt Date: 20091111
  Transmission Date: 20100525
  Serious: No
  Sender: FDA-Public Use
  Company Number: None

PATIENT

DRUGS (1)
  1. BYETTA [Suspect]

REACTIONS (12)
  - ASTHENIA [None]
  - CHILLS [None]
  - DECREASED APPETITE [None]
  - DIZZINESS [None]
  - HEADACHE [None]
  - MALAISE [None]
  - MYALGIA [None]
  - PAIN [None]
  - PYREXIA [None]
  - SOMNOLENCE [None]
  - UNEVALUABLE EVENT [None]
  - VOMITING [None]
